FAERS Safety Report 17898374 (Version 1)
Quarter: 2020Q2

REPORT INFORMATION
  Report Type: Spontaneous
  Country: TR (occurrence: TR)
  Receive Date: 20200616
  Receipt Date: 20200616
  Transmission Date: 20200714
  Serious: Yes (Hospitalization)
  Sender: FDA-Public Use
  Company Number: TR-ALKEM LABORATORIES LIMITED-TR-ALKEM-2020-02680

PATIENT
  Age: 6 Year
  Sex: Male

DRUGS (7)
  1. BENZYLPENICILLIN [Concomitant]
     Active Substance: PENICILLIN G
     Indication: SYDENHAM^S CHOREA
  2. HALOPERIDOL. [Concomitant]
     Active Substance: HALOPERIDOL
     Indication: RHEUMATIC FEVER
     Dosage: 1.5 MILLIGRAM, QD
     Route: 065
  3. BENZYLPENICILLIN [Concomitant]
     Active Substance: PENICILLIN G
     Indication: RHEUMATIC FEVER
     Dosage: 1,200,000 INTERNATIONAL UNIT ONCE IN 3 WEEKS
     Route: 065
  4. HALOPERIDOL. [Concomitant]
     Active Substance: HALOPERIDOL
     Indication: SYDENHAM^S CHOREA
  5. METHYLPHENIDATE HYDROCHLORIDE. [Suspect]
     Active Substance: METHYLPHENIDATE HYDROCHLORIDE
     Indication: ATTENTION DEFICIT HYPERACTIVITY DISORDER
     Dosage: 18 MILLIGRAM, QD
     Route: 048
  6. VALPROATE [Concomitant]
     Active Substance: VALPROIC ACID
     Indication: RHEUMATIC FEVER
     Dosage: 500 MILLIGRAM, QD
     Route: 065
  7. VALPROATE [Concomitant]
     Active Substance: VALPROIC ACID
     Indication: SYDENHAM^S CHOREA

REACTIONS (2)
  - Drug intolerance [Unknown]
  - Chorea [Recovered/Resolved]
